FAERS Safety Report 25912738 (Version 7)
Quarter: 2025Q4

REPORT INFORMATION
  Report Type: Spontaneous
  Country: US (occurrence: US)
  Receive Date: 20251013
  Receipt Date: 20251223
  Transmission Date: 20260118
  Serious: Yes (Other)
  Sender: BIOVITRUM
  Company Number: US-BIOVITRUM-2025-US-013616

PATIENT
  Age: 75 Year
  Sex: Male

DRUGS (3)
  1. VONJO [Suspect]
     Active Substance: PACRITINIB
     Indication: Myeloproliferative neoplasm
     Dosage: 200MG AM AND 100 MG PM DAILY
     Route: 048
     Dates: start: 20250127
  2. HYDROCODONE [Suspect]
     Active Substance: HYDROCODONE
     Indication: Product used for unknown indication
  3. GABAPENTIN [Suspect]
     Active Substance: GABAPENTIN
     Indication: Product used for unknown indication

REACTIONS (3)
  - Back pain [Unknown]
  - Spinal cord neoplasm [Unknown]
  - Serum ferritin increased [Unknown]
